FAERS Safety Report 24042501 (Version 1)
Quarter: 2024Q3

REPORT INFORMATION
  Report Type: Spontaneous
  Country: US (occurrence: US)
  Receive Date: 20240702
  Receipt Date: 20240702
  Transmission Date: 20241017
  Serious: No
  Sender: INTRA-CELLULAR THERAPIES
  Company Number: US-INTRA-CELLULAR THERAPIES, INC.-2024ICT00469

PATIENT
  Sex: Female

DRUGS (3)
  1. CAPLYTA [Suspect]
     Active Substance: LUMATEPERONE
     Indication: Depression
     Dosage: 10.5 MG, 1X/DAY
     Route: 048
     Dates: start: 20240318, end: 20240318
  2. CAPLYTA [Suspect]
     Active Substance: LUMATEPERONE
     Indication: Anxiety
     Dosage: 5.25 MG (HALF CAPSULE), 1X/DAY
     Route: 048
     Dates: start: 20240319
  3. CAPLYTA [Suspect]
     Active Substance: LUMATEPERONE
     Indication: Panic reaction

REACTIONS (5)
  - Fatigue [Not Recovered/Not Resolved]
  - Unevaluable event [Unknown]
  - Drug ineffective for unapproved indication [Unknown]
  - Incorrect dose administered [Unknown]
  - Wrong technique in product usage process [Unknown]

NARRATIVE: CASE EVENT DATE: 20240301
